FAERS Safety Report 21911833 (Version 3)
Quarter: 2023Q1

REPORT INFORMATION
  Report Type: Report from Study
  Country: BR (occurrence: BR)
  Receive Date: 20230125
  Receipt Date: 20230221
  Transmission Date: 20230417
  Serious: Yes (Hospitalization)
  Sender: FDA-Public Use
  Company Number: BR-SEATTLE GENETICS-2023SGN00854

PATIENT
  Age: 41 Year
  Sex: Female
  Weight: 74.2 kg

DRUGS (11)
  1. TISOTUMAB VEDOTIN [Suspect]
     Active Substance: TISOTUMAB VEDOTIN
     Indication: Cervix cancer metastatic
     Dosage: 2 MG/KG, IV INFUSION ON DAY 1 OF EACH 2 DAY CYCLE
     Route: 042
     Dates: start: 20221020
  2. GLIFAGE [Concomitant]
     Active Substance: METFORMIN HYDROCHLORIDE
     Indication: Diabetes mellitus
     Dosage: UNK
     Route: 048
     Dates: start: 202106
  3. PURAN [Concomitant]
     Active Substance: LEVOTHYROXINE SODIUM
     Indication: Hypothyroidism
     Dosage: UNK
     Route: 048
     Dates: start: 2014
  4. ENALAPRIL [Concomitant]
     Active Substance: ENALAPRIL
     Indication: Hypertension
     Dosage: UNK
     Route: 048
     Dates: start: 2014
  5. INSULIN NOS [Concomitant]
     Active Substance: INSULIN NOS
     Indication: Diabetes mellitus
     Dosage: UNK
     Route: 058
     Dates: start: 2014
  6. DIPYRONE [Concomitant]
     Active Substance: DIPYRONE
     Indication: Pelvic pain
     Dosage: UNK
     Route: 048
     Dates: start: 202109
  7. PREGABALIN [Concomitant]
     Active Substance: PREGABALIN
     Indication: Pelvic pain
     Dosage: UNK
     Route: 048
     Dates: start: 20220719
  8. FUROSEMIDE [Concomitant]
     Active Substance: FUROSEMIDE
     Indication: Pleural effusion
     Dosage: UNK
     Route: 048
     Dates: start: 202211
  9. PIPETAZO [Concomitant]
     Indication: Vaginal haemorrhage
     Dosage: UNK
     Route: 042
     Dates: start: 20221229, end: 20230109
  10. GABAPENTIN [Concomitant]
     Active Substance: GABAPENTIN
     Indication: Pelvic pain
     Dosage: UNK
     Route: 048
     Dates: start: 202211
  11. MORPHINE [Concomitant]
     Active Substance: MORPHINE
     Indication: Pelvic pain
     Dosage: UNK
     Route: 048
     Dates: start: 202211

REACTIONS (1)
  - Non-cardiac chest pain [Recovered/Resolved]

NARRATIVE: CASE EVENT DATE: 20230118
